FAERS Safety Report 21858451 (Version 1)
Quarter: 2023Q1

REPORT INFORMATION
  Report Type: Spontaneous
  Country: US (occurrence: None)
  Receive Date: 20230112
  Receipt Date: 20230112
  Transmission Date: 20230418
  Serious: No
  Sender: FDA-Public Use
  Company Number: None

PATIENT
  Age: 20 Year
  Sex: Female

DRUGS (1)
  1. HUMIRA [Suspect]
     Active Substance: ADALIMUMAB
     Indication: Ankylosing spondylitis
     Dosage: 40MG EVERY 2 WEEKS UNDER THE SKIN
     Route: 058
     Dates: start: 202209

REACTIONS (5)
  - Device leakage [None]
  - Device malfunction [None]
  - Accidental exposure to product [None]
  - Product dose omission issue [None]
  - Pain [None]

NARRATIVE: CASE EVENT DATE: 20230102
